FAERS Safety Report 6525230-4 (Version None)
Quarter: 2009Q4

REPORT INFORMATION
  Report Type: 
  Country: None (occurrence: None)
  Receive Date: 20091214
  Receipt Date: 20090302
  Transmission Date: 20100525
  Serious: Yes (Other)
  Sender: FDA-Public Use
  Company Number: 617798

PATIENT
  Age: 42 Year
  Sex: Male

DRUGS (4)
  1. PEGASYS [Suspect]
     Indication: HEPATITIS C
     Dosage: 180 UG 1 PER WEEK
     Dates: start: 20081125
  2. RIBAVIRIN [Suspect]
     Indication: HEPATITIS C
     Dosage: 800 MG DAILY
     Dates: start: 20081125
  3. LITHIUM (LITHIUM NOS) [Concomitant]
  4. ADDERALL (AMFETAMINE/DEXTROAMPHETAMINE) [Concomitant]

REACTIONS (6)
  - AGGRESSION [None]
  - ANGER [None]
  - HALLUCINATION, AUDITORY [None]
  - PAIN [None]
  - SUICIDAL IDEATION [None]
  - VOMITING [None]
